FAERS Safety Report 4446102-5 (Version None)
Quarter: 2004Q3

REPORT INFORMATION
  Report Type: 
  Country: None (occurrence: None)
  Receive Date: 20040910
  Receipt Date: 20040901
  Transmission Date: 20050211
  Serious: Yes (Hospitalization)
  Sender: FDA-Public Use
  Company Number: FR-AMGEN-UK089375

PATIENT
  Age: 40 Year
  Sex: Female

DRUGS (6)
  1. NEULASTA [Suspect]
     Indication: CHEMOTHERAPY
     Route: 065
  2. NEUPOGEN [Suspect]
     Indication: CHEMOTHERAPY
     Route: 065
  3. MESNA [Concomitant]
  4. IFOSFAMIDE [Concomitant]
  5. MITOXANTRONE [Concomitant]
  6. ETOPOSIDE [Concomitant]

REACTIONS (4)
  - ACUTE FEBRILE NEUTROPHILIC DERMATOSIS [None]
  - FEBRILE BONE MARROW APLASIA [None]
  - INFLAMMATION [None]
  - LEUKOCYTOSIS [None]
